FAERS Safety Report 20622396 (Version 3)
Quarter: 2022Q2

REPORT INFORMATION
  Report Type: Report from Study
  Country: US (occurrence: US)
  Receive Date: 20220322
  Receipt Date: 20220507
  Transmission Date: 20220721
  Serious: Yes (Hospitalization)
  Sender: FDA-Public Use
  Company Number: US-NOVARTISPH-NVSC2022US063844

PATIENT
  Sex: Male

DRUGS (1)
  1. ENTRESTO [Suspect]
     Active Substance: SACUBITRIL\VALSARTAN
     Indication: Product used for unknown indication
     Dosage: UNK UNK, BID
     Route: 048

REACTIONS (13)
  - Peripheral swelling [Unknown]
  - Joint swelling [Unknown]
  - Hypercapnia [Unknown]
  - Pericardial effusion [Unknown]
  - Sleep apnoea syndrome [Unknown]
  - Blood glucose decreased [Unknown]
  - Hypotension [Unknown]
  - Arthralgia [Unknown]
  - Pollakiuria [Unknown]
  - Fall [Unknown]
  - Asthenia [Unknown]
  - Wrong technique in product usage process [Unknown]
  - Off label use [Unknown]
